FAERS Safety Report 23100546 (Version 1)
Quarter: 2023Q4

REPORT INFORMATION
  Report Type: Spontaneous
  Country: US (occurrence: US)
  Receive Date: 20231024
  Receipt Date: 20231024
  Transmission Date: 20240110
  Serious: No
  Sender: FDA-Public Use
  Company Number: US-BAYER-2023A145282

PATIENT
  Sex: Male

DRUGS (1)
  1. MIRALAX [Suspect]
     Active Substance: POLYETHYLENE GLYCOL 3350
     Indication: Abdominal discomfort
     Dosage: 7 DF (IN 48 HOURS DOSE)
     Route: 048

REACTIONS (3)
  - Diarrhoea [Unknown]
  - Extra dose administered [Unknown]
  - Incorrect product administration duration [Unknown]
